FAERS Safety Report 4705349-0 (Version None)
Quarter: 2005Q2

REPORT INFORMATION
  Report Type: 
  Country: None (occurrence: None)
  Receive Date: 20050629
  Receipt Date: 20050620
  Transmission Date: 20051028
  Serious: Yes (Other)
  Sender: FDA-Public Use
  Company Number: GXKR2005GB01257

PATIENT
  Age: 55 Year
  Sex: Female
  Weight: 58 kg

DRUGS (7)
  1. AMOXICILLIN [Suspect]
     Indication: COUGH
     Dosage: ORAL
     Route: 048
     Dates: start: 20050311, end: 20050318
  2. REMICADE [Suspect]
     Indication: RHEUMATOID ARTHRITIS
     Dosage: 170 MG, INTRAVENOUS
     Route: 042
     Dates: start: 20031105, end: 20050119
  3. METHOTREXATE [Concomitant]
  4. FOLIC ACID [Concomitant]
  5. NAPROXEN [Concomitant]
  6. RANITIDINE [Concomitant]
  7. PREDNISONE [Concomitant]

REACTIONS (2)
  - LEUKOCYTOCLASTIC VASCULITIS [None]
  - RASH GENERALISED [None]
